FAERS Safety Report 6329741-6 (Version None)
Quarter: 2009Q3

REPORT INFORMATION
  Report Type: 
  Country: None (occurrence: None)
  Receive Date: 20090826
  Receipt Date: 20090813
  Transmission Date: 20100115
  Serious: Yes (Hospitalization)
  Sender: FDA-Public Use
  Company Number: GB-CUBIST-2009S1000336

PATIENT
  Age: 84 Year
  Sex: Male
  Weight: 61.5 kg

DRUGS (2)
  1. CUBICIN [Suspect]
     Indication: STAPHYLOCOCCAL INFECTION
     Route: 042
     Dates: start: 20090325, end: 20090506
  2. CUBICIN [Suspect]
     Indication: DEVICE RELATED INFECTION
     Route: 042
     Dates: start: 20090325, end: 20090506

REACTIONS (2)
  - CHRONIC OBSTRUCTIVE PULMONARY DISEASE [None]
  - PNEUMONIA [None]
